FAERS Safety Report 20678042 (Version 1)
Quarter: 2022Q2

REPORT INFORMATION
  Report Type: Spontaneous
  Country: US (occurrence: US)
  Receive Date: 20220406
  Receipt Date: 20220406
  Transmission Date: 20220720
  Serious: Yes (Other)
  Sender: FDA-Public Use
  Company Number: US-GLENMARK PHARMACEUTICALS-2022GMK071555

PATIENT

DRUGS (1)
  1. RANOLAZINE [Suspect]
     Active Substance: RANOLAZINE
     Indication: Product used for unknown indication
     Dosage: UNK
     Route: 065

REACTIONS (6)
  - Blindness transient [Recovered/Resolved]
  - Skin hyperpigmentation [Unknown]
  - Abdominal discomfort [Unknown]
  - Muscular weakness [Unknown]
  - Tension headache [Unknown]
  - Tinnitus [Unknown]
